FAERS Safety Report 4757212-7 (Version None)
Quarter: 2005Q3

REPORT INFORMATION
  Report Type: 
  Country: None (occurrence: None)
  Receive Date: 20050829
  Receipt Date: 20050824
  Transmission Date: 20060218
  Serious: Yes (Other)
  Sender: FDA-Public Use
  Company Number: 2005-07-2152

PATIENT
  Age: 40 Year
  Sex: Female
  Weight: 108.4097 kg

DRUGS (4)
  1. PEG-INTRON (PEINTERFERON ALFA-2B) INJECTABLE [Suspect]
     Indication: HEPATITIS C
     Dosage: 150 MCG QWK
     Dates: start: 20020801, end: 20040617
  2. REBETOL [Suspect]
     Indication: HEPATITIS C
     Dosage: 1200 MG ORAL
     Route: 048
     Dates: start: 20030101, end: 20040617
  3. EFFEXOR XR [Concomitant]
  4. ATIVAN ORAL [Concomitant]

REACTIONS (5)
  - DENTAL CARIES [None]
  - DYSPEPSIA [None]
  - TOOTH FRACTURE [None]
  - TOOTH LOSS [None]
  - TREATMENT NONCOMPLIANCE [None]
